FAERS Safety Report 7883591-8 (Version None)
Quarter: 2011Q4

REPORT INFORMATION
  Report Type: 
  Country: None (occurrence: None)
  Receive Date: 20111102
  Receipt Date: 20100516
  Transmission Date: 20120403
  Serious: No
  Sender: FDA-Public Use
  Company Number: US-BAYER-201023068NA

PATIENT
  Sex: Female

DRUGS (2)
  1. AVELOX [Suspect]
     Indication: BRONCHITIS
  2. AVELOX [Suspect]
     Indication: INFECTION

REACTIONS (3)
  - FORMICATION [None]
  - INSOMNIA [None]
  - UNEVALUABLE EVENT [None]
